FAERS Safety Report 4293992-5 (Version None)
Quarter: 2004Q1

REPORT INFORMATION
  Report Type: 
  Country: None (occurrence: None)
  Receive Date: 20040212
  Receipt Date: 20040203
  Transmission Date: 20041129
  Serious: Yes (Hospitalization)
  Sender: FDA-Public Use
  Company Number: WAES 0402USA00342

PATIENT
  Age: 55 Year
  Sex: Male

DRUGS (6)
  1. ATENOLOL [Concomitant]
  2. CELEBREX [Concomitant]
     Dates: start: 20030101, end: 20030101
  3. ADALAT [Concomitant]
  4. VIOXX [Suspect]
     Indication: BACK PAIN
     Route: 048
     Dates: start: 20030101, end: 20030101
  5. VIOXX [Suspect]
     Route: 048
     Dates: start: 20030101, end: 20030101
  6. VIOXX [Suspect]
     Route: 048
     Dates: start: 20030101

REACTIONS (2)
  - BACK DISORDER [None]
  - THERAPEUTIC RESPONSE DECREASED [None]
